FAERS Safety Report 6324708-6 (Version None)
Quarter: 2009Q3

REPORT INFORMATION
  Report Type: 
  Country: None (occurrence: None)
  Receive Date: 20090824
  Receipt Date: 20090504
  Transmission Date: 20100115
  Serious: No
  Sender: FDA-Public Use
  Company Number: US-ABBOTT-09P-163-0571299-00

PATIENT
  Age: 63 Year
  Sex: Female

DRUGS (12)
  1. NIASPAN [Suspect]
     Indication: HIGH DENSITY LIPOPROTEIN DECREASED
     Route: 048
     Dates: start: 20090401
  2. NIASPAN [Suspect]
     Indication: LOW DENSITY LIPOPROTEIN INCREASED
  3. AVANDAMET [Concomitant]
     Indication: DRUG USE FOR UNKNOWN INDICATION
     Dosage: 2/500 MG
     Route: 048
  4. BENICAR [Concomitant]
     Indication: DRUG USE FOR UNKNOWN INDICATION
     Route: 048
  5. CRESTOR [Concomitant]
     Indication: DRUG USE FOR UNKNOWN INDICATION
     Route: 048
  6. TRICOR [Concomitant]
     Indication: DRUG USE FOR UNKNOWN INDICATION
     Route: 048
  7. NEXIUM [Concomitant]
     Indication: DRUG USE FOR UNKNOWN INDICATION
     Route: 048
  8. SINGULAIR [Concomitant]
     Indication: DRUG USE FOR UNKNOWN INDICATION
     Route: 048
  9. FLONASE [Concomitant]
     Indication: DRUG USE FOR UNKNOWN INDICATION
     Route: 045
  10. DARVOCET-N 100 [Concomitant]
     Indication: PAIN
     Dosage: 6 PILLS MAX DAILY
  11. FLEXERIL [Concomitant]
     Indication: DRUG USE FOR UNKNOWN INDICATION
     Route: 048
  12. FLEXERIL [Concomitant]

REACTIONS (1)
  - DIZZINESS [None]
